FAERS Safety Report 20791205 (Version 1)
Quarter: 2022Q2

REPORT INFORMATION
  Report Type: Spontaneous
  Country: DE (occurrence: DE)
  Receive Date: 20220505
  Receipt Date: 20220505
  Transmission Date: 20220720
  Serious: Yes (Hospitalization)
  Sender: FDA-Public Use
  Company Number: DE-NOVARTISPH-NVSC2022DE102005

PATIENT
  Age: 77 Year
  Sex: Female

DRUGS (1)
  1. AMOXICILLIN TRIHYDRATE [Suspect]
     Active Substance: AMOXICILLIN
     Indication: Dental implantation
     Dosage: 1 DOSAGE FORM, TID
     Route: 065
     Dates: start: 2020, end: 2020

REACTIONS (1)
  - Meningitis [Unknown]

NARRATIVE: CASE EVENT DATE: 20200101
